FAERS Safety Report 7741854-0 (Version None)
Quarter: 2011Q3

REPORT INFORMATION
  Report Type: 
  Country: None (occurrence: None)
  Receive Date: 20110912
  Receipt Date: 20110828
  Transmission Date: 20111222
  Serious: Yes (Other)
  Sender: FDA-Public Use
  Company Number: CN-JNJFOC-20110800576

PATIENT
  Age: 19 Month
  Sex: Female
  Weight: 13.5 kg

DRUGS (2)
  1. TOPAMAX [Suspect]
     Indication: EPILEPSY
     Dosage: 0.5-1 MG/KG/D
     Route: 048
     Dates: start: 20110701, end: 20110701
  2. TOPAMAX [Suspect]
     Route: 048
     Dates: start: 20110701

REACTIONS (3)
  - PRODUCT QUALITY ISSUE [None]
  - HEPATIC FUNCTION ABNORMAL [None]
  - DRUG ADMINISTERED TO PATIENT OF INAPPROPRIATE AGE [None]
